FAERS Safety Report 15706141 (Version 1)
Quarter: 2018Q4

REPORT INFORMATION
  Report Type: Spontaneous
  Country: HR (occurrence: HR)
  Receive Date: 20181210
  Receipt Date: 20181210
  Transmission Date: 20190205
  Serious: Yes (Hospitalization, Other)
  Sender: FDA-Public Use
  Company Number: HR-SHIRE-HR201846983

PATIENT

DRUGS (2)
  1. PENTASA [Suspect]
     Active Substance: MESALAMINE
     Indication: CROHN^S DISEASE
     Route: 065
  2. METHYLPREDNISOLONE. [Suspect]
     Active Substance: METHYLPREDNISOLONE
     Indication: CROHN^S DISEASE
     Dosage: 12 MG/DAY
     Route: 065

REACTIONS (8)
  - Arterial occlusive disease [Unknown]
  - Post procedural fever [Recovered/Resolved]
  - Strongyloidiasis [Recovered/Resolved]
  - Crohn^s disease [Recovered/Resolved]
  - Ileus [Recovered/Resolved]
  - Cerebellar stroke [Unknown]
  - Malnutrition [Unknown]
  - Drug ineffective [Unknown]

NARRATIVE: CASE EVENT DATE: 2015
